FAERS Safety Report 5764033-5 (Version None)
Quarter: 2008Q2

REPORT INFORMATION
  Report Type: 
  Country: None (occurrence: None)
  Receive Date: 20080602
  Receipt Date: 20080114
  Transmission Date: 20081010
  Serious: No
  Sender: FDA-Public Use
  Company Number: PHEH2007US15934

PATIENT
  Age: 82 Year
  Sex: Female

DRUGS (1)
  1. TEKTURNA [Suspect]

REACTIONS (4)
  - DRY MOUTH [None]
  - DYSPEPSIA [None]
  - DYSPNOEA [None]
  - HEADACHE [None]
